FAERS Safety Report 7609051-7 (Version None)
Quarter: 2011Q3

REPORT INFORMATION
  Report Type: 
  Country: None (occurrence: None)
  Receive Date: 20110706
  Receipt Date: 20110621
  Transmission Date: 20111222
  Serious: Yes (Life-Threatening, Hospitalization, Other)
  Sender: FDA-Public Use
  Company Number: 2011MA007877

PATIENT
  Age: 15 Year
  Sex: Female

DRUGS (1)
  1. FERROUS SUL TAB [Suspect]
     Indication: INTENTIONAL OVERDOSE
     Dosage: 19500 MG; 1X

REACTIONS (16)
  - ACIDOSIS [None]
  - INTRACRANIAL PRESSURE INCREASED [None]
  - LIVER TRANSPLANT [None]
  - BLOOD PRESSURE DECREASED [None]
  - COMA [None]
  - HEART RATE INCREASED [None]
  - INTENTIONAL OVERDOSE [None]
  - HEPATIC NECROSIS [None]
  - INTERNATIONAL NORMALISED RATIO INCREASED [None]
  - TOXICITY TO VARIOUS AGENTS [None]
  - VOMITING [None]
  - BLOOD PRESSURE SYSTOLIC INCREASED [None]
  - MENTAL STATUS CHANGES [None]
  - HEPATORENAL SYNDROME [None]
  - CHROMATURIA [None]
  - HAEMOGLOBIN DECREASED [None]
